FAERS Safety Report 9589022 (Version 1)
Quarter: 2013Q4

REPORT INFORMATION
  Report Type: Spontaneous
  Country: US (occurrence: US)
  Receive Date: 20131003
  Receipt Date: 20131003
  Transmission Date: 20140711
  Serious: No
  Sender: FDA-Public Use
  Company Number: US-AMGEN-USASP2012067127

PATIENT
  Age: 64 Year
  Sex: Female
  Weight: 86.17 kg

DRUGS (9)
  1. ENBREL [Suspect]
     Indication: RHEUMATOID ARTHRITIS
     Dosage: 50 MG/ML, QWK
     Route: 058
  2. LISINOPRIL [Concomitant]
     Dosage: 2.5 MG, UNK
  3. AMITRIPTYLIN [Concomitant]
     Dosage: 10 MG, UNK
  4. PREDNISONE [Concomitant]
     Dosage: 10 MG, UNK
  5. LEFLUNOMIDE [Concomitant]
     Dosage: 10 MG, UNK
  6. HYDROCHLOROTH [Concomitant]
     Dosage: 25 MG, UNK
  7. PRILOSEC                           /00661201/ [Concomitant]
     Dosage: 40 MG, UNK
  8. TYLENOL 8 HOUR [Concomitant]
     Dosage: 650 MG, UNK
  9. SMZ-TMP DS [Concomitant]
     Dosage: 800-160

REACTIONS (1)
  - Injection site pain [Unknown]
